FAERS Safety Report 23607822 (Version 1)
Quarter: 2024Q1

REPORT INFORMATION
  Report Type: Spontaneous
  Country: US (occurrence: US)
  Receive Date: 20240307
  Receipt Date: 20240307
  Transmission Date: 20240409
  Serious: Yes (Hospitalization, Other)
  Sender: FDA-Public Use
  Company Number: US-ANIPHARMA-2024-US-013532

PATIENT
  Age: 74 Year
  Sex: Male

DRUGS (1)
  1. CORTICOTROPIN [Suspect]
     Active Substance: CORTICOTROPIN
     Indication: Sarcoidosis
     Dosage: INJECT 40 UNITS (0.5ML) INTRAMUSCULARLY TWO TIMES A WEEK AS DIRECTED. *DISCARD 28 DAYS AFTER
     Route: 030
     Dates: start: 202312

REACTIONS (5)
  - Pneumonia [Unknown]
  - Nephropathy [Unknown]
  - Condition aggravated [Unknown]
  - Hiccups [Unknown]
  - Contraindicated product administered [Not Recovered/Not Resolved]
